FAERS Safety Report 5362807-6 (Version None)
Quarter: 2007Q2

REPORT INFORMATION
  Report Type: 
  Country: None (occurrence: None)
  Receive Date: 20070614
  Receipt Date: 20070608
  Transmission Date: 20071010
  Serious: Yes (Life-Threatening, Hospitalization)
  Sender: FDA-Public Use
  Company Number: 2007-154103-NL

PATIENT
  Age: 27 Year
  Sex: Female

DRUGS (3)
  1. FOLLICLE-STIMULATING HORMONE, HUMAN [Suspect]
     Indication: HORMONE THERAPY
     Dosage: 75 IU
  2. CHORIONIC GONADOTROPIN [Suspect]
     Indication: HORMONE THERAPY
     Dosage: 5000 IU ONCE
  3. GNRH-ANTAGONIST [Concomitant]

REACTIONS (8)
  - ABORTION SPONTANEOUS [None]
  - ACUTE RESPIRATORY FAILURE [None]
  - ASCITES [None]
  - BLOOD PRESSURE SYSTOLIC INSPIRATORY DECREASED [None]
  - CARDIAC TAMPONADE [None]
  - OVARIAN HYPERSTIMULATION SYNDROME [None]
  - PERICARDIAL EFFUSION [None]
  - PLEURAL EFFUSION [None]
